FAERS Safety Report 7630307-6 (Version None)
Quarter: 2011Q3

REPORT INFORMATION
  Report Type: 
  Country: None (occurrence: None)
  Receive Date: 20110722
  Receipt Date: 20110715
  Transmission Date: 20111222
  Serious: Yes (Other)
  Sender: FDA-Public Use
  Company Number: PHHY2011GB18009

PATIENT
  Age: 37 Year
  Sex: Female

DRUGS (4)
  1. ACETAMINOPHEN AND CODEINE PHOSPHATE [Suspect]
     Indication: SYMPHYSIOLYSIS
  2. ACETAMINOPHEN [Suspect]
     Indication: SYMPHYSIOLYSIS
     Dosage: 1 G, UNK
  3. BUPRENORPHINE [Suspect]
     Indication: SYMPHYSIOLYSIS
     Dosage: 10 UG/HR, UNK
     Route: 062
     Dates: start: 20101215, end: 20101229
  4. MORPHINE SULFATE [Suspect]
     Indication: SYMPHYSIOLYSIS
     Dosage: 5 MG, BID
     Dates: start: 20100922

REACTIONS (3)
  - MATERNAL EXPOSURE DURING PREGNANCY [None]
  - INADEQUATE ANALGESIA [None]
  - INTRA-UTERINE DEATH [None]
